FAERS Safety Report 5695268-8 (Version None)
Quarter: 2008Q2

REPORT INFORMATION
  Report Type: 
  Country: None (occurrence: None)
  Receive Date: 20080404
  Receipt Date: 20080326
  Transmission Date: 20081010
  Serious: Yes (Other)
  Sender: FDA-Public Use
  Company Number: IT-BOEHRINGER INGELHEIM GMBH, GERMANY-2008-DE-01810GD

PATIENT
  Age: 52 Day
  Sex: Female
  Weight: 1.158 kg

DRUGS (2)
  1. IPRATROPIUM BROMIDE [Suspect]
     Indication: BRONCHOSPASM
     Dosage: 0.025 MG/KG
  2. SALBUTAMOL [Suspect]
     Indication: BRONCHOSPASM

REACTIONS (1)
  - DRUG INEFFECTIVE [None]
